FAERS Safety Report 14463447 (Version 1)
Quarter: 2018Q1

REPORT INFORMATION
  Report Type: Other
  Country: US (occurrence: US)
  Receive Date: 20180130
  Receipt Date: 20180130
  Transmission Date: 20180509
  Serious: Yes (Hospitalization)
  Sender: FDA-Public Use
  Company Number: US-ACORDA-ACO_133482_2017

PATIENT
  Age: 68 Year
  Sex: Female

DRUGS (1)
  1. AMPYRA [Suspect]
     Active Substance: DALFAMPRIDINE
     Indication: MULTIPLE SCLEROSIS
     Dosage: 10 MG, BID
     Route: 048

REACTIONS (5)
  - Pain [Recovering/Resolving]
  - Open fracture [Recovering/Resolving]
  - Therapeutic response unexpected [Unknown]
  - Joint injury [Recovered/Resolved]
  - Blood blister [Recovering/Resolving]

NARRATIVE: CASE EVENT DATE: 20161230
